FAERS Safety Report 21917061 (Version 1)
Quarter: 2023Q1

REPORT INFORMATION
  Report Type: Spontaneous
  Country: US (occurrence: US)
  Receive Date: 20230126
  Receipt Date: 20230126
  Transmission Date: 20230417
  Serious: No
  Sender: FDA-Public Use
  Company Number: US-009507513-2301USA008571

PATIENT
  Age: 71 Year
  Sex: Female

DRUGS (4)
  1. MOLNUPIRAVIR [Suspect]
     Active Substance: MOLNUPIRAVIR
     Indication: COVID-19 treatment
     Dosage: 800 MILLIGRAM, Q12H
     Dates: start: 20230119
  2. TRIMETHOPRIM SULFATE [Suspect]
     Active Substance: TRIMETHOPRIM SULFATE
  3. AZITHROMYCIN [Concomitant]
     Active Substance: AZITHROMYCIN
  4. METHYLPREDNISOLONE [Concomitant]
     Active Substance: METHYLPREDNISOLONE

REACTIONS (2)
  - Drug hypersensitivity [Recovered/Resolved]
  - Cross sensitivity reaction [Recovered/Resolved]
